FAERS Safety Report 9721888 (Version 2)
Quarter: 2014Q1

REPORT INFORMATION
  Report Type: Spontaneous
  Country: IT (occurrence: IT)
  Receive Date: 20131201
  Receipt Date: 20140124
  Transmission Date: 20141002
  Serious: Yes (Disabling)
  Sender: FDA-Public Use
  Company Number: IT-BRISTOL-MYERS SQUIBB COMPANY-19857911

PATIENT
  Age: 69 Year
  Sex: Male

DRUGS (6)
  1. GLUCOPHAGE TABS 500 MG [Suspect]
     Indication: INSULIN-REQUIRING TYPE 2 DIABETES MELLITUS
     Route: 048
     Dates: start: 20130101, end: 20131111
  2. NOVORAPID [Suspect]
     Indication: INSULIN-REQUIRING TYPE 2 DIABETES MELLITUS
     Dosage: FLEXPEN 100 U/ML SOLUTION FOR INJECTION S CARTRIDGE IN PRE-FILLED PEN 3 ML
     Route: 058
     Dates: start: 20130101, end: 20131111
  3. LANTUS [Suspect]
     Indication: INSULIN-REQUIRING TYPE 2 DIABETES MELLITUS
     Route: 058
     Dates: start: 20130101, end: 20131111
  4. NEBIVOLOL [Concomitant]
     Route: 048
  5. OLMESARTAN MEDOXOMIL + HCTZ [Concomitant]
     Dosage: 1DF: 20MG/12.5MG
     Route: 048
  6. CARDURA [Concomitant]
     Dosage: 2MG
     Route: 048

REACTIONS (2)
  - Hypoglycaemia [Recovered/Resolved]
  - Loss of consciousness [Recovered/Resolved]
